FAERS Safety Report 8047027-9 (Version None)
Quarter: 2012Q1

REPORT INFORMATION
  Report Type: 
  Country: None (occurrence: None)
  Receive Date: 20120116
  Receipt Date: 20120112
  Transmission Date: 20120608
  Serious: No
  Sender: FDA-Public Use
  Company Number: US-BAYER-2012-004149

PATIENT
  Age: 72 Year
  Sex: Male

DRUGS (3)
  1. ULTRAVIST 150 [Suspect]
     Indication: COMPUTERISED TOMOGRAM ABDOMEN
     Dosage: UNK
     Route: 042
     Dates: start: 20120112, end: 20120112
  2. BETABLOK [Concomitant]
  3. BAKERIN [Concomitant]

REACTIONS (3)
  - EYE PRURITUS [None]
  - PHARYNGEAL OEDEMA [None]
  - LACRIMATION INCREASED [None]
